FAERS Safety Report 15239770 (Version 3)
Quarter: 2020Q3

REPORT INFORMATION
  Report Type: Spontaneous
  Country: CA (occurrence: CA)
  Receive Date: 20180803
  Receipt Date: 20190307
  Transmission Date: 20201104
  Serious: Yes (Death, Hospitalization)
  Sender: FDA-Public Use
  Company Number: CA-CELGENEUS-CAN-20180710554

PATIENT
  Age: 49 Year
  Sex: Female

DRUGS (17)
  1. TREMELIMUMAB. [Suspect]
     Active Substance: TREMELIMUMAB
     Indication: PANCREATIC CARCINOMA METASTATIC
     Dosage: 75 MILLIGRAM
     Route: 041
     Dates: start: 20170814, end: 20171106
  2. PANTOPRAZOLE [Concomitant]
     Active Substance: PANTOPRAZOLE
     Indication: DYSPEPSIA
     Route: 065
     Dates: start: 20170531
  3. RESTORALAX [Concomitant]
     Active Substance: POLYETHYLENE GLYCOL 3350
     Indication: CONSTIPATION
     Route: 065
     Dates: start: 20170605
  4. PREDNISONE. [Concomitant]
     Active Substance: PREDNISONE
     Indication: WEIGHT DECREASED
     Route: 065
     Dates: start: 20180326
  5. MEDI4736 (DURVALUMAB) [Suspect]
     Active Substance: DURVALUMAB
     Indication: PANCREATIC CARCINOMA METASTATIC
     Dosage: 1500 MILLIGRAM
     Route: 041
     Dates: start: 20170814, end: 20180507
  6. GEMCITABINE. [Suspect]
     Active Substance: GEMCITABINE
     Indication: PANCREATIC CARCINOMA METASTATIC
     Dosage: 1368 MILLIGRAM
     Route: 041
     Dates: start: 20170814, end: 20180522
  7. MULTIVITAMIN [Concomitant]
     Active Substance: VITAMINS
     Indication: SUPPLEMENTATION THERAPY
     Route: 065
     Dates: start: 2007
  8. ASCORBIC ACID. [Concomitant]
     Active Substance: ASCORBIC ACID
     Indication: SUPPLEMENTATION THERAPY
     Route: 065
     Dates: start: 2007
  9. PANCREATIN [Concomitant]
     Active Substance: PANCRELIPASE
     Indication: WEIGHT DECREASED
     Route: 065
     Dates: start: 20180326
  10. ERGOCALCIFEROL. [Concomitant]
     Active Substance: ERGOCALCIFEROL
     Indication: SUPPLEMENTATION THERAPY
     Route: 065
     Dates: start: 2007
  11. PANTOPRAZOLE [Concomitant]
     Active Substance: PANTOPRAZOLE
     Indication: DYSPEPSIA
  12. BENZOYL PEROXIDE. [Concomitant]
     Active Substance: BENZOYL PEROXIDE
     Indication: ACNE
     Route: 065
     Dates: start: 20180119
  13. HYDROMORPHONE HYDROCHLORIDE. [Concomitant]
     Active Substance: HYDROMORPHONE HYDROCHLORIDE
     Indication: BACK PAIN
     Route: 065
     Dates: start: 20180522
  14. ABRAXANE [Suspect]
     Active Substance: PACLITAXEL
     Indication: PANCREATIC CARCINOMA METASTATIC
     Dosage: 170 MILLIGRAM
     Route: 041
     Dates: start: 20170814, end: 20180522
  15. PANTOPRAZOLE [Concomitant]
     Active Substance: PANTOPRAZOLE
     Indication: GASTROOESOPHAGEAL REFLUX DISEASE
  16. CLINDAMYCIN W/HYDROCORTISONE [Concomitant]
     Indication: ACNE
     Route: 065
     Dates: start: 20180312
  17. PANTOPRAZOLE [Concomitant]
     Active Substance: PANTOPRAZOLE
     Indication: GASTROOESOPHAGEAL REFLUX DISEASE

REACTIONS (4)
  - Cerebral ischaemia [Not Recovered/Not Resolved]
  - Embolism [Fatal]
  - Pancreatic carcinoma [Fatal]
  - Posterior reversible encephalopathy syndrome [Recovered/Resolved]

NARRATIVE: CASE EVENT DATE: 20180608
